FAERS Safety Report 8192581-X (Version None)
Quarter: 2012Q1

REPORT INFORMATION
  Report Type: 
  Country: None (occurrence: None)
  Receive Date: 20120308
  Receipt Date: 20120229
  Transmission Date: 20120608
  Serious: Yes (Other)
  Sender: FDA-Public Use
  Company Number: US-BAYER-2012-021015

PATIENT
  Age: 25 Year
  Sex: Female

DRUGS (1)
  1. MIRENA [Suspect]
     Indication: CONTRACEPTION
     Dosage: DAILY DOSE 20 ?G
     Route: 015

REACTIONS (5)
  - VAGINAL HAEMORRHAGE [None]
  - HYPOMENORRHOEA [None]
  - DIZZINESS [None]
  - DEPRESSION [None]
  - GENITAL HAEMORRHAGE [None]
